FAERS Safety Report 21195033 (Version 1)
Quarter: 2022Q3

REPORT INFORMATION
  Report Type: Spontaneous
  Country: DE (occurrence: DE)
  Receive Date: 20220810
  Receipt Date: 20220810
  Transmission Date: 20221026
  Serious: Yes (Hospitalization)
  Sender: FDA-Public Use
  Company Number: DE-ANIPHARMA-2022-DE-000107

PATIENT
  Age: 66 Year
  Sex: Female

DRUGS (11)
  1. CANDESARTAN CILEXETIL [Suspect]
     Active Substance: CANDESARTAN CILEXETIL
     Indication: Condition aggravated
     Dosage: 32 MG DAILY / 16 MG DAILY
     Route: 065
     Dates: start: 20110311
  2. HYDROCHLOROTHIAZIDE [Suspect]
     Active Substance: HYDROCHLOROTHIAZIDE
     Dosage: 25 MG DAILY / 25 MG DAILY
     Route: 065
     Dates: start: 20220311
  3. ATORVASTATIN [Suspect]
     Active Substance: ATORVASTATIN
     Dosage: 40 MG DAILY / 40 MG DAILY
     Route: 065
     Dates: start: 20220311
  4. METOPROLOL [Suspect]
     Active Substance: METOPROLOL
     Dosage: 47.5 MG DAILY / UNK
     Route: 065
     Dates: start: 20220311
  5. ZOPICLONE [Concomitant]
     Active Substance: ZOPICLONE
     Dosage: 3.75 MG DAILY
     Route: 065
     Dates: start: 20220607
  6. ASPIRIN [Suspect]
     Active Substance: ASPIRIN
     Dosage: 100 MG DAILY / 100 MG DAILY
     Route: 065
     Dates: start: 20220311
  7. EZETIMIBE [Suspect]
     Active Substance: EZETIMIBE
     Dosage: UNK / 10 MG DAILY / 10 MG DAILY
     Route: 065
     Dates: start: 20220311
  8. CARBOPLATIN [Suspect]
     Active Substance: CARBOPLATIN
     Dosage: 681.24 MG ONCE / 681.24 MG ONCE / 681.24 MG ONCE
     Route: 065
     Dates: start: 20220419, end: 20220509
  9. PEMBROLIZUMAB [Suspect]
     Active Substance: PEMBROLIZUMAB
     Route: 065
  10. PACLITAXEL [Suspect]
     Active Substance: PACLITAXEL
     Dosage: 314 MG ONCE / 314 MG ONCE / 314 MG ONCE
     Route: 065
     Dates: start: 20220419, end: 20220614
  11. INDACATEROL [Suspect]
     Active Substance: INDACATEROL
     Dosage: 85 UG/INHAL DAILY
     Route: 065
     Dates: start: 20220705

REACTIONS (4)
  - Condition aggravated [Recovered/Resolved]
  - Product use in unapproved indication [Unknown]
  - Radiation pneumonitis [Recovered/Resolved]
  - Chronic obstructive pulmonary disease [Recovered/Resolved]

NARRATIVE: CASE EVENT DATE: 20220629
